FAERS Safety Report 8825882 (Version 1)
Quarter: 2012Q4

REPORT INFORMATION
  Report Type: 
  Country: US (occurrence: US)
  Receive Date: 20121005
  Receipt Date: 20121005
  Transmission Date: 20130627
  Serious: Yes (Death)
  Sender: FDA-Public Use
  Company Number: US-ROCHE-1131013

PATIENT
  Sex: Male

DRUGS (6)
  1. RITUXAN [Suspect]
     Indication: CHRONIC LYMPHOCYTIC LEUKAEMIA
     Route: 065
     Dates: start: 19990902
  2. RITUXAN [Suspect]
     Indication: LYMPHOCYTIC LYMPHOMA
     Route: 065
     Dates: start: 19990909
  3. RITUXAN [Suspect]
     Route: 065
     Dates: start: 19990923
  4. RITUXAN [Suspect]
     Route: 065
     Dates: start: 19991105
  5. BENADRYL [Concomitant]
  6. TYLENOL [Concomitant]

REACTIONS (1)
  - Death [Fatal]
